FAERS Safety Report 8765249 (Version 2)
Quarter: 2012Q4

REPORT INFORMATION
  Report Type: 
  Country: US (occurrence: US)
  Receive Date: 20120903
  Receipt Date: 20120921
  Transmission Date: 20130627
  Serious: No
  Sender: FDA-Public Use
  Company Number: US-PFIZER INC-2012213286

PATIENT
  Age: 39 Year
  Sex: Male
  Weight: 78.91 kg

DRUGS (4)
  1. CHANTIX [Suspect]
     Indication: SMOKING CESSATION THERAPY
     Dosage: 0.5 mg, 1x/day
     Route: 048
     Dates: start: 201208, end: 201208
  2. CHANTIX [Suspect]
     Dosage: 1 mg, 2x/day
     Route: 048
     Dates: start: 201208, end: 201208
  3. CHANTIX [Suspect]
     Dosage: UNK
     Route: 048
     Dates: start: 201208, end: 20120828
  4. AMOXICILLIN [Suspect]
     Indication: STREPTOCOCCAL INFECTION
     Dosage: 875 mg, 2x/day
     Route: 048
     Dates: start: 20120816, end: 20120826

REACTIONS (7)
  - Palpitations [Not Recovered/Not Resolved]
  - Chest discomfort [Not Recovered/Not Resolved]
  - Dysphagia [Unknown]
  - Nervousness [Unknown]
  - Fear [Unknown]
  - Drug intolerance [Unknown]
  - Chest pain [Recovered/Resolved]
